FAERS Safety Report 12119574 (Version 1)
Quarter: 2016Q1

REPORT INFORMATION
  Report Type: Spontaneous
  Country: US (occurrence: None)
  Receive Date: 20160225
  Receipt Date: 20160225
  Transmission Date: 20160526
  Serious: No
  Sender: FDA-Public Use
  Company Number: None

PATIENT
  Age: 61 Year
  Sex: Male
  Weight: 116.8 kg

DRUGS (1)
  1. 5-FLUROURACIL [Suspect]
     Active Substance: FLUOROURACIL
     Dates: end: 20160223

REACTIONS (2)
  - Loss of consciousness [None]
  - Choking [None]

NARRATIVE: CASE EVENT DATE: 20160211
